FAERS Safety Report 17235186 (Version 1)
Quarter: 2019Q4

REPORT INFORMATION
  Report Type: Spontaneous
  Country: US (occurrence: US)
  Receive Date: 20191211
  Receipt Date: 20191211
  Transmission Date: 20200122
  Serious: Yes (Hospitalization)
  Sender: FDA-Public Use
  Company Number: None

PATIENT
  Age: 65 Year
  Sex: Female

DRUGS (1)
  1. SOFOSBUVIR / VELPATASVIR 400-100MG ASEGUA THERAPEUTICS [Suspect]
     Active Substance: SOFOSBUVIR\VELPATASVIR
     Indication: HEPATITIS C
     Route: 048
     Dates: start: 20190904

REACTIONS (2)
  - Blood potassium decreased [None]
  - Blood sodium decreased [None]

NARRATIVE: CASE EVENT DATE: 20191124
